FAERS Safety Report 10039950 (Version 1)
Quarter: 2014Q1

REPORT INFORMATION
  Report Type: Report from Study
  Country: CA (occurrence: CA)
  Receive Date: 20140326
  Receipt Date: 20140326
  Transmission Date: 20141002
  Serious: Yes (Hospitalization)
  Sender: FDA-Public Use
  Company Number: CA-JNJFOC-20140307163

PATIENT
  Age: 50 Year
  Sex: Female
  Weight: 50 kg

DRUGS (4)
  1. REMICADE [Suspect]
     Indication: CROHN^S DISEASE
     Route: 042
     Dates: start: 20040113
  2. HYDROCORTISONE [Concomitant]
     Route: 065
  3. BENADRYL [Concomitant]
     Route: 065
  4. GABAPENTIN [Concomitant]
     Route: 065

REACTIONS (1)
  - Herpes zoster [Not Recovered/Not Resolved]
